FAERS Safety Report 10524550 (Version 1)
Quarter: 2014Q4

REPORT INFORMATION
  Report Type: Spontaneous
  Country: KR (occurrence: KR)
  Receive Date: 20141017
  Receipt Date: 20141017
  Transmission Date: 20150528
  Serious: Yes (Hospitalization)
  Sender: FDA-Public Use
  Company Number: KR-ACTELION-A-CH2014-106262

PATIENT
  Age: 33 Year
  Sex: Female

DRUGS (5)
  1. FURIX [Concomitant]
     Active Substance: FUROSEMIDE
     Dosage: 40 MG, UNK
     Dates: start: 20140520
  2. TRACLEER [Suspect]
     Active Substance: BOSENTAN\BOSENTAN MONOHYDRATE
     Indication: PULMONARY HYPERTENSION
     Dosage: 62.5 MG, BID
     Route: 048
     Dates: start: 20140522
  3. OXIKLORIN [Concomitant]
     Active Substance: HYDROXYCHLOROQUINE SULFATE
     Indication: RHEUMATOID ARTHRITIS
     Dosage: 200 MG, UNK
     Dates: start: 20130429
  4. DIGOXIN. [Concomitant]
     Active Substance: DIGOXIN
     Dosage: 0.25 MG, UNK
     Dates: start: 20140520
  5. ADALAT [Concomitant]
     Active Substance: NIFEDIPINE
     Dosage: 60 MG, UNK
     Dates: start: 20130429

REACTIONS (8)
  - Breast calcifications [Unknown]
  - Peptic ulcer [Unknown]
  - Gastrooesophageal reflux disease [Unknown]
  - Nasopharyngitis [Unknown]
  - Dyspepsia [Unknown]
  - Cough [Unknown]
  - Benign breast neoplasm [Unknown]
  - Fibroadenoma of breast [Unknown]

NARRATIVE: CASE EVENT DATE: 20140910
